FAERS Safety Report 8350677 (Version 2)
Quarter: 2014Q1

REPORT INFORMATION
  Report Type: Spontaneous
  Country: US (occurrence: US)
  Receive Date: 20120124
  Receipt Date: 20140203
  Transmission Date: 20141002
  Serious: Yes (Other)
  Sender: FDA-Public Use
  Company Number: US-BAYER-2012-006432

PATIENT
  Age: 16 Year
  Sex: Female

DRUGS (5)
  1. YAZ [Suspect]
     Dosage: UNK
     Dates: start: 20090225, end: 20100622
  2. YAZ [Suspect]
     Dosage: UNK
     Dates: start: 20080604, end: 20080805
  3. YAZ [Suspect]
     Dosage: UNK
     Dates: start: 20100917, end: 20101017
  4. CITALOPRAM [Concomitant]
     Dosage: 20 MG, UNK
     Route: 048
     Dates: start: 20091020, end: 20100104
  5. IBUPROFEN [Concomitant]
     Dosage: 800 MG, UNK
     Route: 048
     Dates: start: 20090911, end: 20100104

REACTIONS (3)
  - Cholecystectomy [None]
  - Injury [None]
  - Cholecystitis chronic [None]
